FAERS Safety Report 5843397-8 (Version None)
Quarter: 2008Q3

REPORT INFORMATION
  Report Type: 
  Country: None (occurrence: None)
  Receive Date: 20080813
  Receipt Date: 20080807
  Transmission Date: 20090109
  Serious: Yes (Other)
  Sender: FDA-Public Use
  Company Number: A0741579A

PATIENT
  Sex: Male

DRUGS (2)
  1. AVODART [Suspect]
     Indication: BENIGN PROSTATIC HYPERPLASIA
     Dosage: 1CAP SINGLE DOSE
     Route: 048
     Dates: start: 20080805, end: 20080805
  2. UNKNOWN [Concomitant]

REACTIONS (3)
  - ANAPHYLACTIC SHOCK [None]
  - PHARYNGEAL OEDEMA [None]
  - RASH [None]
